FAERS Safety Report 14762264 (Version 1)
Quarter: 2018Q2

REPORT INFORMATION
  Report Type: Spontaneous
  Country: US (occurrence: US)
  Receive Date: 20180416
  Receipt Date: 20180416
  Transmission Date: 20180711
  Serious: No
  Sender: FDA-Public Use
  Company Number: US-BION-006802

PATIENT
  Age: 85 Year
  Sex: Female
  Weight: 51.98 kg

DRUGS (2)
  1. RAMIPRIL. [Concomitant]
     Active Substance: RAMIPRIL
  2. ALEVE [Suspect]
     Active Substance: NAPROXEN SODIUM
     Indication: PAIN
     Dosage: TOOK 2 ALEVE
     Route: 048

REACTIONS (1)
  - Intentional product misuse [Not Recovered/Not Resolved]
